FAERS Safety Report 7672273-3 (Version None)
Quarter: 2011Q3

REPORT INFORMATION
  Report Type: 
  Country: None (occurrence: None)
  Receive Date: 20110804
  Receipt Date: 20110709
  Transmission Date: 20111222
  Serious: Yes (Hospitalization)
  Sender: FDA-Public Use
  Company Number: None

PATIENT
  Age: 18 Year
  Sex: Male
  Weight: 78.4723 kg

DRUGS (3)
  1. CLINDAMYCIN 1% - BENZOYL PEROXIDE 3% [Suspect]
     Indication: ACNE
     Dosage: TOPICAL
     Route: 061
     Dates: start: 20110523
  2. PRODAXA (50MG) [Concomitant]
  3. METROPOLOL (25MG) [Concomitant]

REACTIONS (1)
  - ATRIAL FLUTTER [None]
